FAERS Safety Report 5160508-0 (Version None)
Quarter: 2006Q4

REPORT INFORMATION
  Report Type: 
  Country: None (occurrence: None)
  Receive Date: 20061129
  Receipt Date: 20050418
  Transmission Date: 20070319
  Serious: Yes (Other)
  Sender: FDA-Public Use
  Company Number: FR-BOEHRINGER INGELHEIM PHARMACEUTICALS, INC.-2005-FF-00296FF

PATIENT
  Sex: Male
  Weight: 78 kg

DRUGS (7)
  1. TIPRANAVIR + RITONAVIR CO-ADMIN [Suspect]
     Indication: HIV INFECTION
     Dosage: TPV/RTV: 500/200 MG B.I.D.
     Route: 048
     Dates: start: 20040416
  2. LEDERFOLIN [Concomitant]
     Indication: PROPHYLAXIS
     Route: 048
     Dates: start: 19951211
  3. PYRIMETHAMINE TAB [Concomitant]
     Indication: PROPHYLAXIS
     Route: 048
     Dates: start: 19951211
  4. DAPSONE [Concomitant]
     Indication: PROPHYLAXIS
     Route: 048
     Dates: start: 19951211
  5. VIREAD [Concomitant]
     Indication: HIV INFECTION
     Route: 048
     Dates: start: 20020627
  6. SUSTIVA [Concomitant]
     Indication: HIV INFECTION
     Route: 048
     Dates: start: 20040416
  7. FUZEON [Concomitant]
     Indication: HIV INFECTION
     Route: 058
     Dates: start: 20031019

REACTIONS (2)
  - CHOLESTASIS [None]
  - CYTOLYTIC HEPATITIS [None]
